FAERS Safety Report 26194234 (Version 1)
Quarter: 2025Q4

REPORT INFORMATION
  Report Type: Spontaneous
  Country: EU (occurrence: EU)
  Receive Date: 20251224
  Receipt Date: 20251224
  Transmission Date: 20260117
  Serious: Yes (Life-Threatening)
  Sender: AUROBINDO
  Company Number: EU-AFSSAPS-CN2025001146

PATIENT
  Age: 56 Year
  Sex: Female
  Weight: 70 kg

DRUGS (9)
  1. LIDOCAINE [Suspect]
     Active Substance: LIDOCAINE
     Indication: Anaesthesia
     Dosage: 80 MILLIGRAM, ONCE A DAY
     Dates: start: 20240805, end: 20240805
  2. SUFENTANIL [Suspect]
     Active Substance: SUFENTANIL
     Indication: Analgesic therapy
     Dosage: 15 MICROGRAM, ONCE A DAY
     Dates: start: 20240805, end: 20240805
  3. KETAMINE [Suspect]
     Active Substance: KETAMINE
     Indication: Anaesthesia
     Dosage: 10 MILLIGRAM, ONCE A DAY
     Dates: start: 20240805, end: 20240805
  4. ATRACURIUM [Suspect]
     Active Substance: ATRACURIUM
     Indication: Muscle relaxant therapy
     Dosage: 30 MILLIGRAM, ONCE A DAY
     Dates: start: 20240805, end: 20240805
  5. DEXAMETHASONE [Suspect]
     Active Substance: DEXAMETHASONE
     Indication: Prophylaxis of nausea and vomiting
     Dosage: 8 MILLIGRAM, ONCE A DAY
     Dates: start: 20240805, end: 20240805
  6. PROPOFOL [Suspect]
     Active Substance: PROPOFOL
     Indication: Anaesthesia
     Dosage: 150 MILLIGRAM, ONCE A DAY
     Dates: start: 20240805, end: 20240805
  7. NEO-MERCAZOLE [Concomitant]
     Active Substance: CARBIMAZOLE
     Indication: Hyperthyroidism
     Dosage: 10 MILLIGRAM, ONCE A DAY
     Route: 061
  8. NAPROXEN [Concomitant]
     Active Substance: NAPROXEN
     Indication: Product used for unknown indication
     Dosage: 1100 MILLIGRAM, ONCE A DAY
     Route: 061
  9. OMEPRAZOLE [Concomitant]
     Active Substance: OMEPRAZOLE
     Indication: Product used for unknown indication
     Dosage: 20 MILLIGRAM, ONCE A DAY
     Route: 061

REACTIONS (2)
  - Tachyarrhythmia [Recovered/Resolved]
  - Hypotension [Recovered/Resolved]

NARRATIVE: CASE EVENT DATE: 20240805
